FAERS Safety Report 14212175 (Version 1)
Quarter: 2017Q4

REPORT INFORMATION
  Report Type: Spontaneous
  Country: US (occurrence: None)
  Receive Date: 20171121
  Receipt Date: 20171121
  Transmission Date: 20180321
  Serious: Yes (Other)
  Sender: FDA-Public Use
  Company Number: None

PATIENT
  Age: 43 Year
  Sex: Male

DRUGS (5)
  1. VIAGRA [Concomitant]
     Active Substance: SILDENAFIL CITRATE
  2. DABRAFENIB [Suspect]
     Active Substance: DABRAFENIB
     Indication: AMELOBLASTOMA
     Route: 048
     Dates: start: 20140607
  3. HYDROCODONE-ACETAMINOPHEN [Concomitant]
     Active Substance: ACETAMINOPHEN\HYDROCODONE
  4. TRAMETINIB [Suspect]
     Active Substance: TRAMETINIB
     Indication: AMELOBLASTOMA
     Route: 048
     Dates: start: 20140607
  5. CLINDAMYCIN. [Concomitant]
     Active Substance: CLINDAMYCIN

REACTIONS (4)
  - Exposure via body fluid [None]
  - Pregnancy of partner [None]
  - Exposure via father [None]
  - Twin pregnancy [None]
